FAERS Safety Report 4934268-X (Version None)
Quarter: 2006Q1

REPORT INFORMATION
  Report Type: 
  Country: None (occurrence: None)
  Receive Date: 20060303
  Receipt Date: 20060220
  Transmission Date: 20060701
  Serious: Yes (Hospitalization)
  Sender: FDA-Public Use
  Company Number: 2006028209

PATIENT
  Age: 80 Year
  Sex: Female

DRUGS (6)
  1. HALCION [Suspect]
     Indication: ILL-DEFINED DISORDER
     Dosage: 0.25 MG (1 IN 1 D), ORAL
     Route: 048
     Dates: start: 20050801, end: 20060218
  2. OMEPRAZOLE [Suspect]
     Indication: ILL-DEFINED DISORDER
     Dosage: 20 MG (1 IN 1 D), ORAL
     Route: 048
     Dates: start: 20050801, end: 20060218
  3. PRIMPERAN TAB [Concomitant]
  4. OLMETEC (OLMESARTAN) [Concomitant]
  5. LANDEL (EFONIDIPINE HYDROCHLORIDE) [Concomitant]
  6. ALDACTONE [Concomitant]

REACTIONS (3)
  - BLOOD CREATINE PHOSPHOKINASE INCREASED [None]
  - DIFFICULTY IN WALKING [None]
  - INFLUENZA [None]
